FAERS Safety Report 11218430 (Version 2)
Quarter: 2015Q3

REPORT INFORMATION
  Report Type: Spontaneous
  Country: JP (occurrence: JP)
  Receive Date: 20150625
  Receipt Date: 20150709
  Transmission Date: 20151125
  Serious: Yes (Hospitalization)
  Sender: FDA-Public Use
  Company Number: JP-PFIZER INC-2015203127

PATIENT
  Age: 4 Year
  Sex: Female

DRUGS (4)
  1. REVATIO [Concomitant]
     Active Substance: SILDENAFIL CITRATE
     Dosage: 2.5 MG, 1X/DAY
     Route: 048
     Dates: start: 20141126
  2. REVATIO [Concomitant]
     Active Substance: SILDENAFIL CITRATE
     Indication: PULMONARY HYPERTENSION
     Dosage: 5 MG, 2X/DAY
     Route: 048
     Dates: start: 20130702, end: 20141125
  3. GENOTROPIN GOQUICK [Suspect]
     Active Substance: SOMATROPIN
     Indication: PRADER-WILLI SYNDROME
  4. GENOTROPIN GOQUICK [Suspect]
     Active Substance: SOMATROPIN
     Indication: BODY HEIGHT BELOW NORMAL
     Dosage: 0.3 MG, DAILY (6 DAYS A WEEK)
     Route: 058
     Dates: start: 20130710, end: 201407

REACTIONS (2)
  - Adenoidal disorder [Recovering/Resolving]
  - Sleep apnoea syndrome [Recovering/Resolving]

NARRATIVE: CASE EVENT DATE: 20140703
